FAERS Safety Report 5156234-4 (Version None)
Quarter: 2006Q4

REPORT INFORMATION
  Report Type: 
  Country: None (occurrence: None)
  Receive Date: 20061114
  Receipt Date: 20061107
  Transmission Date: 20070319
  Serious: Yes (Hospitalization, Other)
  Sender: FDA-Public Use
  Company Number: 2006SP001109

PATIENT
  Age: 45 Year
  Sex: Female
  Weight: 62.1428 kg

DRUGS (9)
  1. PEG-INTRON [Suspect]
     Indication: HEPATITIS C
     Dates: start: 20050819, end: 20060126
  2. REBETOL [Suspect]
     Indication: HEPATITIS C
     Dosage: 400 MG; BID; PO
     Route: 048
     Dates: start: 20050819, end: 20060126
  3. FOLIC ACID [Concomitant]
  4. LEXAPRO [Concomitant]
  5. METHOTREXATE [Concomitant]
  6. NEURONTIN [Concomitant]
  7. PHENERGAN [Concomitant]
  8. PREMARIN [Concomitant]
  9. TRAZODONE HCL [Concomitant]

REACTIONS (17)
  - ALOPECIA [None]
  - AMNESIA [None]
  - ANGER [None]
  - ANXIETY [None]
  - COMA [None]
  - CONFUSIONAL STATE [None]
  - DEPRESSION [None]
  - DIET REFUSAL [None]
  - DISEASE RECURRENCE [None]
  - LETHARGY [None]
  - MENTAL STATUS CHANGES [None]
  - PSYCHOTIC DISORDER [None]
  - RESPIRATORY TRACT INFECTION [None]
  - TOXIC SHOCK SYNDROME [None]
  - TREATMENT NONCOMPLIANCE [None]
  - VOMITING [None]
  - WEIGHT DECREASED [None]
